FAERS Safety Report 13261944 (Version 13)
Quarter: 2018Q3

REPORT INFORMATION
  Report Type: Report from Study
  Country: US (occurrence: US)
  Receive Date: 20170222
  Receipt Date: 20180918
  Transmission Date: 20181010
  Serious: Yes (Death, Hospitalization)
  Sender: FDA-Public Use
  Company Number: US-ACTELION-A-US2017-150007

PATIENT
  Age: 57 Year
  Sex: Female
  Weight: 57.6 kg

DRUGS (45)
  1. OPSUMIT [Suspect]
     Active Substance: MACITENTAN
     Indication: PULMONARY ARTERIAL HYPERTENSION
     Dosage: 10 MG, QD
     Route: 048
     Dates: start: 20170111, end: 20170207
  2. VELETRI [Suspect]
     Active Substance: EPOPROSTENOL
     Dosage: 13 NG/KG, PER MIN
     Route: 042
     Dates: end: 20170622
  3. MULTIVITAMIN [Concomitant]
     Active Substance: VITAMINS
  4. POTASSIUM CHLORIDE. [Concomitant]
     Active Substance: POTASSIUM CHLORIDE
  5. COUMADIN [Suspect]
     Active Substance: WARFARIN SODIUM
     Indication: PRODUCT USED FOR UNKNOWN INDICATION
     Route: 065
  6. SPIRONOLACTONE. [Suspect]
     Active Substance: SPIRONOLACTONE
     Indication: PRODUCT USED FOR UNKNOWN INDICATION
     Route: 065
  7. AMIODARONE [Concomitant]
     Active Substance: AMIODARONE
  8. ATARAX [Concomitant]
     Active Substance: HYDROXYZINE HYDROCHLORIDE
  9. VELETRI [Suspect]
     Active Substance: EPOPROSTENOL
     Indication: PULMONARY ARTERIAL HYPERTENSION
     Dosage: 15 NG/KG, PER MIN
     Route: 042
  10. VELETRI [Suspect]
     Active Substance: EPOPROSTENOL
     Dosage: 20 NG/KG, PER MIN
     Route: 042
  11. VELETRI [Suspect]
     Active Substance: EPOPROSTENOL
     Dosage: UNK
     Route: 042
  12. FRESH FROZEN PLASMA [Concomitant]
     Active Substance: HUMAN PLASMA
  13. MIRALAX [Concomitant]
     Active Substance: POLYETHYLENE GLYCOL 3350
  14. ONDANSETRON [Concomitant]
     Active Substance: ONDANSETRON
     Dosage: UNK
     Dates: start: 20170621
  15. DIGOXIN. [Concomitant]
     Active Substance: DIGOXIN
  16. LOPERAMIDE [Concomitant]
     Active Substance: LOPERAMIDE
  17. BISMUTH SUBSALICYLATE. [Concomitant]
     Active Substance: BISMUTH SUBSALICYLATE
     Dosage: UNK
     Dates: start: 20170621
  18. GUAIFENESIN. [Concomitant]
     Active Substance: GUAIFENESIN
     Dosage: UNK
     Dates: start: 20170621
  19. OPSUMIT [Suspect]
     Active Substance: MACITENTAN
     Dosage: UNK
     Route: 048
     Dates: start: 20170111, end: 20170115
  20. XARELTO [Concomitant]
     Active Substance: RIVAROXABAN
  21. BENADRYL [Concomitant]
     Active Substance: DIPHENHYDRAMINE HYDROCHLORIDE
  22. FEXOFENADINE [Concomitant]
     Active Substance: FEXOFENADINE\FEXOFENADINE HYDROCHLORIDE
  23. ALDACTONE [Concomitant]
     Active Substance: SPIRONOLACTONE
  24. HALOPERIDOL. [Concomitant]
     Active Substance: HALOPERIDOL
  25. LORAZEPAM. [Concomitant]
     Active Substance: LORAZEPAM
  26. MORPHINE [Concomitant]
     Active Substance: MORPHINE
  27. NOREPINEPHRINE. [Concomitant]
     Active Substance: NOREPINEPHRINE
  28. BISACODYL. [Concomitant]
     Active Substance: BISACODYL
     Dosage: UNK
     Dates: start: 20170621
  29. PETROLATUM. [Concomitant]
     Active Substance: PETROLATUM
     Dosage: UNK
     Dates: start: 20170621
  30. REVATIO [Concomitant]
     Active Substance: SILDENAFIL CITRATE
  31. SCOPOLAMINE [Concomitant]
     Active Substance: SCOPOLAMINE
  32. IMODIUM A?D [Concomitant]
     Active Substance: LOPERAMIDE HYDROCHLORIDE
  33. LACTOBACILLUS ACIDOPHILUS\LACTOBACILLUS BULGARICUS [Concomitant]
     Active Substance: LACTOBACILLUS ACIDOPHILUS\LACTOBACILLUS DELBRUECKII SUBSP. BULGARICUS
  34. TRIAMCINOLONE [Concomitant]
     Active Substance: TRIAMCINOLONE
  35. ZOFRAN [Concomitant]
     Active Substance: ONDANSETRON HYDROCHLORIDE
  36. LEVOTHYROXINE. [Concomitant]
     Active Substance: LEVOTHYROXINE
  37. PROTONIX [Concomitant]
     Active Substance: PANTOPRAZOLE SODIUM
  38. GLYCOPYRROLATE. [Concomitant]
     Active Substance: GLYCOPYRROLATE
  39. POLYETHYLENE GLYCOL [Concomitant]
     Active Substance: POLYETHYLENE GLYCOLS
     Dosage: UNK
     Dates: start: 20170621
  40. OPSUMIT [Suspect]
     Active Substance: MACITENTAN
     Dosage: 10 MG, QD
     Route: 048
     Dates: start: 20170301, end: 20170622
  41. BUMETANIDE. [Concomitant]
     Active Substance: BUMETANIDE
  42. CALMOSEPTINE [Concomitant]
     Active Substance: MENTHOL\ZINC OXIDE
  43. EPINEPHRINE. [Concomitant]
     Active Substance: EPINEPHRINE
  44. PROBIOTIC [Concomitant]
     Active Substance: PROBIOTICS NOS
  45. MILRINONE [Concomitant]
     Active Substance: MILRINONE

REACTIONS (30)
  - Condition aggravated [Unknown]
  - Right ventricular dilatation [Fatal]
  - Peripheral coldness [Fatal]
  - Dry skin [Not Recovered/Not Resolved]
  - Multiple organ dysfunction syndrome [Fatal]
  - Renal failure [Fatal]
  - Oedema peripheral [Fatal]
  - Paracentesis [Recovered/Resolved]
  - Rash [Recovered/Resolved]
  - Ascites [Unknown]
  - Respiratory distress [Fatal]
  - Hypoaesthesia oral [Not Recovered/Not Resolved]
  - Nausea [Unknown]
  - Tachypnoea [Fatal]
  - Unevaluable event [Unknown]
  - Tachycardia [Fatal]
  - Hypotension [Unknown]
  - Right ventricular failure [Fatal]
  - Tricuspid valve incompetence [Unknown]
  - Medication error [Unknown]
  - Generalised oedema [Fatal]
  - Acute kidney injury [Unknown]
  - Pulmonary arterial hypertension [Fatal]
  - Pruritus generalised [Not Recovered/Not Resolved]
  - Vomiting [Unknown]
  - Pulmonary oedema [Fatal]
  - Cardiogenic shock [Fatal]
  - Toxicity to various agents [Recovered/Resolved]
  - Blood disorder [Unknown]
  - Tricuspid valve prolapse [Unknown]

NARRATIVE: CASE EVENT DATE: 20170206
